FAERS Safety Report 9175968 (Version 1)
Quarter: 2013Q1

REPORT INFORMATION
  Report Type: Spontaneous
  Country: US (occurrence: US)
  Receive Date: 20130320
  Receipt Date: 20130320
  Transmission Date: 20140127
  Serious: Yes (Other)
  Sender: FDA-Public Use
  Company Number: US-ALEXION-A201300049

PATIENT
  Age: 72 Year
  Sex: Female

DRUGS (1)
  1. SOLIRIS 300MG [Suspect]
     Indication: PAROXYSMAL NOCTURNAL HAEMOGLOBINURIA
     Dosage: UNK
     Route: 042

REACTIONS (6)
  - Infusion site infection [Unknown]
  - Device malfunction [Unknown]
  - Catheter removal [Unknown]
  - Catheter placement [Unknown]
  - Pain [Unknown]
  - Somnolence [Unknown]
